FAERS Safety Report 9204180 (Version 3)
Quarter: 2013Q2

REPORT INFORMATION
  Report Type: Spontaneous
  Country: US (occurrence: US)
  Receive Date: 20130402
  Receipt Date: 20130502
  Transmission Date: 20140414
  Serious: Yes (Hospitalization)
  Sender: FDA-Public Use
  Company Number: US-ALEXION PHARMACEUTICALS INC.-A201300576

PATIENT
  Age: 58 Year
  Sex: Female

DRUGS (1)
  1. SOLIRIS 300MG [Suspect]
     Indication: HAEMOLYTIC URAEMIC SYNDROME
     Dosage: UNK
     Route: 042

REACTIONS (8)
  - Diverticulitis [Unknown]
  - Colitis [Unknown]
  - Inflammation [Unknown]
  - Malaise [Unknown]
  - Post procedural infection [Recovering/Resolving]
  - Pyrexia [Unknown]
  - Weight decreased [Unknown]
  - Fatigue [Recovering/Resolving]
